FAERS Safety Report 8076331-3 (Version None)
Quarter: 2012Q1

REPORT INFORMATION
  Report Type: 
  Country: None (occurrence: None)
  Receive Date: 20120127
  Receipt Date: 20120123
  Transmission Date: 20120608
  Serious: Yes (Hospitalization)
  Sender: FDA-Public Use
  Company Number: DE-ROCHE-1033020

PATIENT
  Age: 70 Year
  Weight: 63 kg

DRUGS (4)
  1. XELODA [Suspect]
     Indication: COLON CANCER
     Dates: start: 20110330, end: 20110916
  2. AVASTIN [Suspect]
     Indication: COLON CANCER
  3. IRINOTECAN HCL [Suspect]
     Indication: COLON CANCER
  4. XELODA [Suspect]
     Dosage: RESTARTED

REACTIONS (4)
  - CONSTIPATION [None]
  - VOMITING [None]
  - ASTHENIA [None]
  - JAUNDICE [None]
